FAERS Safety Report 22387721 (Version 2)
Quarter: 2023Q2

REPORT INFORMATION
  Report Type: Other
  Country: US (occurrence: None)
  Receive Date: 20230531
  Receipt Date: 20230607
  Transmission Date: 20230721
  Serious: Yes (Disabling)
  Sender: FDA-Public Use
  Company Number: US-ROCHE-3335258

PATIENT
  Age: 7 Year
  Sex: Female
  Weight: 15.5 kg

DRUGS (3)
  1. EVRYSDI [Suspect]
     Active Substance: RISDIPLAM
     Indication: Spinal muscular atrophy
     Dosage: FEEDING TUBE
     Route: 050
     Dates: start: 20221125, end: 20230505
  2. EVRYSDI [Suspect]
     Active Substance: RISDIPLAM
     Route: 050
  3. EVRYSDI [Suspect]
     Active Substance: RISDIPLAM
     Route: 065
     Dates: start: 20221124, end: 20230505

REACTIONS (7)
  - Anxiety [Unknown]
  - Dyspnoea [Unknown]
  - Abdominal distension [Unknown]
  - Abdominal pain upper [Unknown]
  - Abdominal discomfort [Unknown]
  - Dyspepsia [Unknown]
  - Reaction to sweetener [Unknown]

NARRATIVE: CASE EVENT DATE: 20230417
